FAERS Safety Report 23014731 (Version 1)
Quarter: 2023Q4

REPORT INFORMATION
  Report Type: Spontaneous
  Country: US (occurrence: US)
  Receive Date: 20231002
  Receipt Date: 20231002
  Transmission Date: 20240109
  Serious: No
  Sender: FDA-Public Use
  Company Number: US-BoehringerIngelheim-2023-BI-264315

PATIENT

DRUGS (1)
  1. OFEV [Suspect]
     Active Substance: NINTEDANIB
     Indication: Product used for unknown indication
     Dosage: MILLIGRAM

REACTIONS (2)
  - COVID-19 [Unknown]
  - Brain fog [Unknown]
